FAERS Safety Report 21963269 (Version 1)
Quarter: 2023Q1

REPORT INFORMATION
  Report Type: Spontaneous
  Country: FR (occurrence: FR)
  Receive Date: 20230207
  Receipt Date: 20230207
  Transmission Date: 20230418
  Serious: Yes (Other)
  Sender: FDA-Public Use
  Company Number: FR-HARMONY BIOSCIENCES-2023HMY00189

PATIENT
  Age: 33 Year
  Sex: Female

DRUGS (1)
  1. WAKIX [Suspect]
     Active Substance: PITOLISANT HYDROCHLORIDE
     Indication: Somnolence
     Dosage: 35.6 MG
     Dates: start: 202206, end: 202207

REACTIONS (4)
  - Hepatic cytolysis [Unknown]
  - Malaise [Unknown]
  - Nausea [Unknown]
  - Off label use [Recovered/Resolved]
